FAERS Safety Report 9314462 (Version 2)
Quarter: 2013Q2

REPORT INFORMATION
  Report Type: Spontaneous
  Country: US (occurrence: US)
  Receive Date: 20130529
  Receipt Date: 20130618
  Transmission Date: 20140414
  Serious: No
  Sender: FDA-Public Use
  Company Number: US-PFIZER INC-2013160065

PATIENT
  Age: 61 Year
  Sex: Female

DRUGS (1)
  1. DICLOFENAC SODIUM/MISOPROSTOL [Suspect]
     Dosage: 1 TABLET TWICE A DAY

REACTIONS (6)
  - Malaise [Unknown]
  - Nausea [Unknown]
  - Lethargy [Unknown]
  - Irritability [Unknown]
  - Abdominal pain [Unknown]
  - Pain [Unknown]
